FAERS Safety Report 11221330 (Version 1)
Quarter: 2015Q2

REPORT INFORMATION
  Report Type: Spontaneous
  Country: US (occurrence: US)
  Receive Date: 20150626
  Receipt Date: 20150626
  Transmission Date: 20150821
  Serious: Yes (Other)
  Sender: FDA-Public Use
  Company Number: US-BAYER-2015-361097

PATIENT
  Sex: Female

DRUGS (1)
  1. MIRENA [Suspect]
     Active Substance: LEVONORGESTREL
     Dosage: 20 MCG/24HR, CONT
     Route: 015
     Dates: start: 201107, end: 20141124

REACTIONS (10)
  - Gastrointestinal disorder [None]
  - Dehydration [None]
  - Injury [None]
  - Genital haemorrhage [None]
  - Device dislocation [None]
  - Nausea [None]
  - Pain [None]
  - Vomiting [None]
  - Emotional distress [None]
  - Mood swings [None]

NARRATIVE: CASE EVENT DATE: 20141122
